FAERS Safety Report 23276411 (Version 1)
Quarter: 2023Q4

REPORT INFORMATION
  Report Type: Spontaneous
  Country: CA (occurrence: CA)
  Receive Date: 20231208
  Receipt Date: 20231208
  Transmission Date: 20240109
  Serious: Yes (Other)
  Sender: FDA-Public Use
  Company Number: CA-PFIZER INC-202300434728

PATIENT
  Age: 50 Year
  Sex: Male

DRUGS (5)
  1. METHOTREXATE SODIUM [Suspect]
     Active Substance: METHOTREXATE SODIUM
     Dosage: 2.5MG X 6 TABS OD
  2. PROLIA [Concomitant]
     Active Substance: DENOSUMAB
     Dosage: Q6MNTHLY INJ
  3. PANTOPRAZOLE SODIUM [Concomitant]
     Active Substance: PANTOPRAZOLE SODIUM
     Dosage: 40MG OD
  4. RAMIPRIL [Concomitant]
     Active Substance: RAMIPRIL
     Dosage: 10MG OD
  5. PREDNISONE [Concomitant]
     Active Substance: PREDNISONE
     Dosage: 75MG OD WILL TAPER ONCE ON RUX

REACTIONS (3)
  - Renal vasculitis [Not Recovered/Not Resolved]
  - Vasculitis [Not Recovered/Not Resolved]
  - Drug ineffective [Not Recovered/Not Resolved]
